FAERS Safety Report 5393437-8 (Version None)
Quarter: 2007Q3

REPORT INFORMATION
  Report Type: 
  Country: None (occurrence: None)
  Receive Date: 20070723
  Receipt Date: 20060901
  Transmission Date: 20080115
  Serious: No
  Sender: FDA-Public Use
  Company Number: A0501610A

PATIENT
  Age: 68 Year
  Sex: Female
  Weight: 89.5 kg

DRUGS (14)
  1. AVANDIA [Suspect]
     Dosage: 4MG PER DAY
     Route: 048
     Dates: start: 20040123
  2. GEMFIBROZIL [Concomitant]
     Indication: DRUG USE FOR UNKNOWN INDICATION
  3. LISINOPRIL [Concomitant]
  4. LORAZEPAM [Concomitant]
  5. CLONAZEPAM [Concomitant]
  6. COZAAR [Concomitant]
     Route: 065
  7. VYTORIN [Concomitant]
     Route: 065
  8. DIAZEPAM [Concomitant]
     Route: 065
  9. DARVOCET [Concomitant]
     Route: 065
  10. CORTISONE ACETATE [Concomitant]
     Route: 065
  11. EPIDURAL [Concomitant]
     Route: 065
  12. NIACIN [Concomitant]
     Route: 065
  13. LASIX [Concomitant]
     Route: 065
  14. POTASSIUM CHLORIDE [Concomitant]
     Route: 065

REACTIONS (3)
  - OEDEMA [None]
  - WEIGHT INCREASED [None]
  - WEIGHT LOSS POOR [None]
